FAERS Safety Report 18526655 (Version 1)
Quarter: 2020Q4

REPORT INFORMATION
  Report Type: Other
  Country: CA (occurrence: CA)
  Receive Date: 20201120
  Receipt Date: 20201120
  Transmission Date: 20210114
  Serious: Yes (Other)
  Sender: FDA-Public Use
  Company Number: CA-APOTEX-2020AP021870

PATIENT
  Age: 10 Year
  Sex: Male

DRUGS (6)
  1. CYCLOSPORINE. [Suspect]
     Active Substance: CYCLOSPORINE
     Indication: PROPHYLAXIS AGAINST GRAFT VERSUS HOST DISEASE
     Dosage: UNK
     Route: 065
  2. CYCLOSPORINE. [Suspect]
     Active Substance: CYCLOSPORINE
     Indication: BONE MARROW TRANSPLANT
  3. METHOTREXATE. [Suspect]
     Active Substance: METHOTREXATE
     Indication: BONE MARROW TRANSPLANT
  4. METHOTREXATE. [Suspect]
     Active Substance: METHOTREXATE
     Indication: IMMUNOSUPPRESSANT DRUG THERAPY
  5. METHOTREXATE. [Suspect]
     Active Substance: METHOTREXATE
     Indication: PROPHYLAXIS AGAINST GRAFT VERSUS HOST DISEASE
     Route: 065
  6. CYCLOSPORINE. [Suspect]
     Active Substance: CYCLOSPORINE
     Indication: IMMUNOSUPPRESSANT DRUG THERAPY
     Dosage: UNK
     Route: 048

REACTIONS (6)
  - Acute graft versus host disease in intestine [Unknown]
  - Acute graft versus host disease in skin [Unknown]
  - Acute graft versus host disease in liver [Unknown]
  - Chronic graft versus host disease in liver [Unknown]
  - Chronic graft versus host disease in intestine [Unknown]
  - Chronic graft versus host disease in skin [Unknown]
